FAERS Safety Report 4829025-9 (Version None)
Quarter: 2005Q4

REPORT INFORMATION
  Report Type: 
  Country: None (occurrence: None)
  Receive Date: 20051027
  Receipt Date: 20050531
  Transmission Date: 20060501
  Serious: Yes (Other)
  Sender: FDA-Public Use
  Company Number: HQWYE770403AUG04

PATIENT
  Age: 61 Year
  Sex: Female
  Weight: 63.56 kg

DRUGS (2)
  1. PREMARIN [Suspect]
     Indication: MENOPAUSE
     Dosage: ORAL
     Route: 048
     Dates: start: 19910101, end: 19960502
  2. PROVERA [Suspect]
     Dates: start: 19910101, end: 19960502

REACTIONS (1)
  - BREAST CANCER [None]
